FAERS Safety Report 14649481 (Version 5)
Quarter: 2018Q2

REPORT INFORMATION
  Report Type: Report from Study
  Country: AU (occurrence: AU)
  Receive Date: 20180316
  Receipt Date: 20180518
  Transmission Date: 20180711
  Serious: Yes (Other)
  Sender: FDA-Public Use
  Company Number: AU-VERTEX PHARMACEUTICALS-2018-001720

PATIENT
  Age: 2 Year
  Sex: Male
  Weight: 13 kg

DRUGS (5)
  1. SALT [Concomitant]
     Active Substance: SODIUM CHLORIDE
     Dosage: 1+1/2 TEASPOON, QD
     Dates: start: 20160325
  2. VX-770 [Suspect]
     Active Substance: IVACAFTOR
     Dosage: 50 MG, BID
     Route: 048
     Dates: start: 20170321, end: 20170906
  3. CREON [Concomitant]
     Active Substance: PANCRELIPASE AMYLASE\PANCRELIPASE LIPASE\PANCRELIPASE PROTEASE
     Indication: PANCREATIC FAILURE
     Dosage: 10000 UNK, UNK
     Dates: start: 20170418
  4. INNER HEALTH PLUS [Concomitant]
     Dosage: 1 TEASPOON, PRN
     Dates: start: 20160610
  5. VX-770 [Suspect]
     Active Substance: IVACAFTOR
     Indication: CYSTIC FIBROSIS
     Dosage: 50 MG, BID
     Route: 048
     Dates: start: 20170906

REACTIONS (1)
  - Electrocardiogram QT shortened [Recovered/Resolved]

NARRATIVE: CASE EVENT DATE: 20180226
